FAERS Safety Report 14300453 (Version 1)
Quarter: 2017Q4

REPORT INFORMATION
  Report Type: Report from Study
  Country: RU (occurrence: RU)
  Receive Date: 20171219
  Receipt Date: 20171219
  Transmission Date: 20180321
  Serious: Yes (Other)
  Sender: FDA-Public Use
  Company Number: RU-TEVA-2017-RU-834294

PATIENT
  Age: 4 Year
  Sex: Female
  Weight: 14.3 kg

DRUGS (3)
  1. DOXORUBICIN-TEVA [Suspect]
     Active Substance: DOXORUBICIN
     Indication: EWING^S SARCOMA
     Dosage: LAST DOSE PRIOR TO SAE: 12-APR-2017
     Route: 042
     Dates: start: 20170410, end: 20170412
  2. LONQUEX [Suspect]
     Active Substance: LIPEGFILGRASTIM
     Indication: PROPHYLAXIS
     Dosage: LAST DOSE PRIOR TO SAE: 24-FEB-2017
     Route: 058
     Dates: start: 20161219, end: 20170224
  3. ETOPOSIDE-TEVA [Suspect]
     Active Substance: ETOPOSIDE
     Indication: EWING^S SARCOMA
     Dosage: LAST DOSE PRIOR TO SAE: 12-APR-2017
     Route: 042
     Dates: start: 20170410, end: 20170412

REACTIONS (2)
  - Thrombocytopenia [Recovered/Resolved with Sequelae]
  - Lymphopenia [Recovered/Resolved with Sequelae]

NARRATIVE: CASE EVENT DATE: 20170415
